FAERS Safety Report 12004644 (Version 2)
Quarter: 2016Q1

REPORT INFORMATION
  Report Type: Spontaneous
  Country: SA (occurrence: SA)
  Receive Date: 20160204
  Receipt Date: 20160302
  Transmission Date: 20160526
  Serious: Yes (Death, Hospitalization, Other)
  Sender: FDA-Public Use
  Company Number: SA-ALEXION PHARMACEUTICALS INC.-A201600506

PATIENT
  Age: 1 Year
  Sex: Female

DRUGS (1)
  1. STRENSIQ [Suspect]
     Active Substance: ASFOTASE ALFA
     Indication: HYPOPHOSPHATASIA
     Dosage: 2 MG/KG, TIW
     Route: 058
     Dates: start: 20151008

REACTIONS (4)
  - Respiratory failure [Fatal]
  - Viral infection [Unknown]
  - Hypercalcaemia [None]
  - Respiratory syncytial virus bronchiolitis [Fatal]

NARRATIVE: CASE EVENT DATE: 20160114
